FAERS Safety Report 25387830 (Version 1)
Quarter: 2025Q2

REPORT INFORMATION
  Report Type: Report from Study
  Country: US (occurrence: US)
  Receive Date: 20250603
  Receipt Date: 20250603
  Transmission Date: 20250717
  Serious: No
  Sender: SANDOZ
  Company Number: US-SANDOZ-SDZ2025US037919

PATIENT
  Sex: Male

DRUGS (1)
  1. HYRIMOZ [Suspect]
     Active Substance: ADALIMUMAB-ADAZ
     Indication: Product used for unknown indication
     Dosage: 40 MG, ONCE EVERY TWO WEEKS
     Route: 058

REACTIONS (4)
  - Crying [Unknown]
  - Screaming [Unknown]
  - Injection site pain [Unknown]
  - Product substitution issue [Unknown]
